FAERS Safety Report 5087518-6 (Version None)
Quarter: 2006Q3

REPORT INFORMATION
  Report Type: 
  Country: None (occurrence: None)
  Receive Date: 20060824
  Receipt Date: 20060822
  Transmission Date: 20061208
  Serious: Yes (Hospitalization)
  Sender: FDA-Public Use
  Company Number: US-GLAXOSMITHKLINE-A0617679A

PATIENT
  Age: 45 Year
  Sex: Female

DRUGS (1)
  1. ADVAIR DISKUS 100/50 [Suspect]
     Indication: CHRONIC OBSTRUCTIVE PULMONARY DISEASE
     Dosage: 1PUFF TWICE PER DAY
     Route: 055

REACTIONS (5)
  - ABDOMINAL PAIN UPPER [None]
  - DIARRHOEA [None]
  - DYSPHONIA [None]
  - KIDNEY INFECTION [None]
  - VOMITING [None]
